FAERS Safety Report 7178166-2 (Version None)
Quarter: 2010Q4

REPORT INFORMATION
  Report Type: 
  Country: None (occurrence: None)
  Receive Date: 20101220
  Receipt Date: 20101215
  Transmission Date: 20110411
  Serious: Yes (Other)
  Sender: FDA-Public Use
  Company Number: D0069748A

PATIENT

DRUGS (1)
  1. DUODART [Suspect]
     Route: 048

REACTIONS (1)
  - ATRIAL FIBRILLATION [None]
